FAERS Safety Report 6239618-2 (Version None)
Quarter: 2009Q2

REPORT INFORMATION
  Report Type: 
  Country: None (occurrence: None)
  Receive Date: 20090619
  Receipt Date: 20090608
  Transmission Date: 20091009
  Serious: Yes (Death, Hospitalization)
  Sender: FDA-Public Use
  Company Number: 2009-02285

PATIENT
  Age: 85 Year
  Sex: Female
  Weight: 76 kg

DRUGS (15)
  1. VELCADE [Suspect]
     Indication: MULTIPLE MYELOMA
     Dosage: 2.4 MG, UNK, INTRAVENOUS
     Route: 042
     Dates: start: 20090420
  2. ALFADIL(DOXAZOSIN MESILATE) [Suspect]
     Indication: DRUG USE FOR UNKNOWN INDICATION
     Dosage: 4 MG, UNK, ORAL
     Route: 048
     Dates: start: 20070326, end: 20090505
  3. RAMIPRIL [Suspect]
     Indication: DRUG USE FOR UNKNOWN INDICATION
     Dosage: 1.25 MG, UNK, ORAL
     Route: 048
     Dates: start: 20090409
  4. BISOPROLOL FUMARATE [Suspect]
     Indication: DRUG USE FOR UNKNOWN INDICATION
     Dosage: 1.25 MG, UNK, ORAL
     Route: 048
     Dates: start: 20090409, end: 20090430
  5. PREDNISOLONE [Concomitant]
  6. ACETYLSALICYLIC ACID SRT [Concomitant]
  7. PLAVIX [Concomitant]
  8. HEPARIN [Concomitant]
  9. AVODART/USA/(DUTASTERIDE) [Concomitant]
  10. WARFARIN SODIUM [Concomitant]
  11. FRAGMIN [Concomitant]
  12. FUROSEMIDE [Concomitant]
  13. LUNELAX (ISPAGHULA) [Concomitant]
  14. ALVEDON (PARACETAMOL) [Concomitant]
  15. ZOPICLONE (ZOPICLONE) [Concomitant]

REACTIONS (1)
  - HYPOTENSION [None]
